FAERS Safety Report 4816348-2 (Version None)
Quarter: 2005Q4

REPORT INFORMATION
  Report Type: 
  Country: None (occurrence: None)
  Receive Date: 20051031
  Receipt Date: 20051027
  Transmission Date: 20060501
  Serious: Yes (Hospitalization)
  Sender: FDA-Public Use
  Company Number: DE-MERCK-0510DEU00145

PATIENT
  Sex: Female

DRUGS (5)
  1. COZAAR [Suspect]
     Indication: HYPERTENSION
     Route: 048
     Dates: start: 20000101, end: 20020101
  2. ETIDRONATE DISODIUM [Concomitant]
     Route: 065
  3. MOLSIDOMINE [Concomitant]
     Route: 065
  4. CLOMIPRAMINE HYDROCHLORIDE [Concomitant]
     Route: 065
  5. METHOTREXATE [Concomitant]
     Indication: POLYARTHRITIS
     Route: 065

REACTIONS (1)
  - PULMONARY FIBROSIS [None]
